FAERS Safety Report 8358802-5 (Version None)
Quarter: 2012Q2

REPORT INFORMATION
  Report Type: 
  Country: None (occurrence: None)
  Receive Date: 20120514
  Receipt Date: 20100818
  Transmission Date: 20120825
  Serious: Yes (Other)
  Sender: FDA-Public Use
  Company Number: PHHY2010AU093996

PATIENT
  Sex: Female

DRUGS (2)
  1. FORTEO [Concomitant]
  2. ZOLEDRONOC ACID [Suspect]
     Dosage: 5 MG
     Route: 042
     Dates: start: 20081209

REACTIONS (2)
  - HIP FRACTURE [None]
  - DEVICE INFUSION ISSUE [None]
